FAERS Safety Report 9509204 (Version 2)
Quarter: 2013Q3

REPORT INFORMATION
  Report Type: Spontaneous
  Country: US (occurrence: US)
  Receive Date: 20130909
  Receipt Date: 20130909
  Transmission Date: 20140515
  Serious: Yes (Other)
  Sender: FDA-Public Use
  Company Number: US-BRISTOL-MYERS SQUIBB COMPANY-19018266

PATIENT
  Sex: Male

DRUGS (2)
  1. ABILIFY [Suspect]
  2. CITALOPRAM [Suspect]

REACTIONS (1)
  - Grand mal convulsion [Recovered/Resolved]
